FAERS Safety Report 9228917 (Version 1)
Quarter: 2013Q2

REPORT INFORMATION
  Report Type: Spontaneous
  Country: GB (occurrence: GB)
  Receive Date: 20130412
  Receipt Date: 20130412
  Transmission Date: 20140414
  Serious: Yes (Other)
  Sender: FDA-Public Use
  Company Number: PHHY2013GB033971

PATIENT
  Age: 35 Year
  Sex: Male
  Weight: 88.9 kg

DRUGS (1)
  1. METRONIDAZOLE [Suspect]
     Indication: SMALL INTESTINAL BACTERIAL OVERGROWTH
     Dosage: 400 MG, TID
     Route: 048
     Dates: start: 20130321, end: 20130325

REACTIONS (11)
  - Panic attack [Recovered/Resolved with Sequelae]
  - Dysstasia [Recovered/Resolved]
  - Dyspnoea [Recovered/Resolved]
  - Balance disorder [Recovered/Resolved]
  - Palpitations [Recovered/Resolved]
  - Vertigo [Recovered/Resolved]
  - Hallucination [Recovered/Resolved]
  - Paraesthesia [Recovered/Resolved]
  - Visual impairment [Recovered/Resolved]
  - Hallucination, auditory [Recovered/Resolved]
  - Tremor [Recovered/Resolved]
